FAERS Safety Report 9304972 (Version 2)
Quarter: 2013Q4

REPORT INFORMATION
  Report Type: Spontaneous
  Country: US (occurrence: None)
  Receive Date: 20130521
  Receipt Date: 20131113
  Transmission Date: 20140711
  Serious: Yes (Other)
  Sender: FDA-Public Use
  Company Number: CA13-0226

PATIENT
  Age: 71 Year
  Sex: Female
  Weight: 63 kg

DRUGS (3)
  1. ENOXAPARIN SODIUM [Suspect]
     Indication: THROMBOSIS
     Route: 058
     Dates: start: 20130304, end: 20130320
  2. ENOXAPARIN SODIUM [Suspect]
     Indication: THROMBOSIS
     Route: 058
     Dates: start: 20130408, end: 20130429
  3. ENOXAPARIN SODIUM [Suspect]
     Indication: THROMBOSIS
     Dosage: DOSAGE TAKEN AT THE SAME TIME AS #2 DOSAGE.
     Route: 058
     Dates: start: 20130408, end: 20130429

REACTIONS (5)
  - Vena cava thrombosis [None]
  - General physical health deterioration [None]
  - Malignant neoplasm progression [None]
  - Metastases to bone [None]
  - Lung neoplasm malignant [None]
